FAERS Safety Report 25835082 (Version 1)
Quarter: 2025Q3

REPORT INFORMATION
  Report Type: Report from Study
  Country: US (occurrence: US)
  Receive Date: 20250923
  Receipt Date: 20250923
  Transmission Date: 20251020
  Serious: Yes (Other)
  Sender: ALEXION PHARMACEUTICALS
  Company Number: 202506USA008401US

PATIENT
  Age: 63 Year
  Sex: Male

DRUGS (1)
  1. STRENSIQ [Suspect]
     Active Substance: ASFOTASE ALFA
     Indication: Hypophosphatasia
     Dosage: 2 MILLIGRAM/KILOGRAM, Q3W

REACTIONS (13)
  - Compression fracture [Unknown]
  - Neuropathy peripheral [Unknown]
  - Fatigue [Unknown]
  - Insomnia [Unknown]
  - Cough [Unknown]
  - Headache [Unknown]
  - Bone pain [Unknown]
  - Arthralgia [Unknown]
  - Depression [Unknown]
  - Osteoporosis [Unknown]
  - Small airways disease [Unknown]
  - Fracture [Unknown]
  - Tooth loss [Unknown]

NARRATIVE: CASE EVENT DATE: 20240101
